FAERS Safety Report 23695238 (Version 2)
Quarter: 2024Q2

REPORT INFORMATION
  Report Type: Spontaneous
  Country: US (occurrence: US)
  Receive Date: 20240402
  Receipt Date: 20240429
  Transmission Date: 20240716
  Serious: No
  Sender: FDA-Public Use
  Company Number: US-ALK-ABELLO A/S-2024AA001126

PATIENT

DRUGS (1)
  1. HISTAMINE PHOSPHATE [Suspect]
     Active Substance: HISTAMINE PHOSPHATE
     Indication: Skin test
     Dosage: 0.3 MILLILITER
     Route: 023
     Dates: start: 20240220

REACTIONS (5)
  - Erythema [Recovering/Resolving]
  - Tenderness [Recovering/Resolving]
  - Injection site pain [Recovering/Resolving]
  - Injection site ulcer [Recovering/Resolving]
  - Pain [Recovering/Resolving]

NARRATIVE: CASE EVENT DATE: 20240220
